FAERS Safety Report 5358572-9 (Version None)
Quarter: 2007Q2

REPORT INFORMATION
  Report Type: 
  Country: None (occurrence: None)
  Receive Date: 20070601
  Receipt Date: 20070406
  Transmission Date: 20071010
  Serious: No
  Sender: FDA-Public Use
  Company Number: PHEH2007US04476

PATIENT
  Age: 43 Year

DRUGS (2)
  1. ENABLEX [Suspect]
     Indication: HYPERTONIC BLADDER
     Dosage: 15 MG, QD, ORAL
     Route: 048
     Dates: end: 20070405
  2. LEVOTHYROXINE SODIUM [Concomitant]

REACTIONS (1)
  - FATIGUE [None]
